FAERS Safety Report 18916045 (Version 1)
Quarter: 2021Q1

REPORT INFORMATION
  Report Type: Spontaneous
  Country: CA (occurrence: CA)
  Receive Date: 20210219
  Receipt Date: 20210219
  Transmission Date: 20210420
  Serious: Yes (Other)
  Sender: FDA-Public Use
  Company Number: CA-MERZ PHARMACEUTICALS GMBH-21-00617

PATIENT
  Age: 76 Year
  Sex: Female

DRUGS (16)
  1. ALMOTRIPTAN. [Suspect]
     Active Substance: ALMOTRIPTAN
     Indication: MIGRAINE
     Dosage: 12.5 MG
  2. LORAZEPAM. [Concomitant]
     Active Substance: LORAZEPAM
  3. PANTOPRAZOLE [Concomitant]
     Active Substance: PANTOPRAZOLE
  4. CANDESARTAN CILEXETIL. [Suspect]
     Active Substance: CANDESARTAN CILEXETIL
     Indication: MIGRAINE
     Dosage: 4 MG
     Route: 048
  5. CYPROHEPTADINE. [Suspect]
     Active Substance: CYPROHEPTADINE
     Indication: MIGRAINE
     Dosage: 4 MG
  6. DEPO?MEDROL [Concomitant]
     Active Substance: METHYLPREDNISOLONE ACETATE
  7. MOMETASONE [Concomitant]
     Active Substance: MOMETASONE
  8. BETAHISTINE [Concomitant]
     Active Substance: BETAHISTINE
  9. CYCLOMEN [Concomitant]
     Active Substance: DANAZOL
  10. AZITHROMYCIN ANHYDROUS. [Concomitant]
     Active Substance: AZITHROMYCIN ANHYDROUS
  11. FAMOTIDINE. [Concomitant]
     Active Substance: FAMOTIDINE
  12. MEMANTINE HYDROCHLORIDE. [Concomitant]
     Active Substance: MEMANTINE HYDROCHLORIDE
     Indication: MIGRAINE
     Dosage: 10 MG
  13. ERYTHROMYCIN ESTOLATE. [Concomitant]
     Active Substance: ERYTHROMYCIN ESTOLATE
  14. GABAPENTIN. [Concomitant]
     Active Substance: GABAPENTIN
  15. RIZATRIPTAN BENZOATE. [Suspect]
     Active Substance: RIZATRIPTAN BENZOATE
     Indication: MIGRAINE
     Dosage: 10 MG
  16. BOTULINUM TOXIN TYPE A [Suspect]
     Active Substance: BOTULINUM TOXIN TYPE A
     Indication: MIGRAINE

REACTIONS (7)
  - Periorbital oedema [Recovered/Resolved]
  - Product use in unapproved indication [Unknown]
  - Drug intolerance [Unknown]
  - Muscle spasms [Recovered/Resolved]
  - Anaphylactic reaction [Recovered/Resolved]
  - Drug ineffective for unapproved indication [Unknown]
  - Periorbital swelling [Recovered/Resolved]
